FAERS Safety Report 7320145-6 (Version None)
Quarter: 2011Q1

REPORT INFORMATION
  Report Type: 
  Country: None (occurrence: None)
  Receive Date: 20110214
  Receipt Date: 20110105
  Transmission Date: 20110831
  Serious: Yes (Other)
  Sender: FDA-Public Use
  Company Number: IMP_05346_2011

PATIENT
  Sex: Female

DRUGS (1)
  1. LORATADINE AND PSEUDOEPHEDRINE SULFATE [Suspect]
     Indication: PRODUCT USED FOR UNKNOWN INDICATION
     Dosage: DF ORAL
     Route: 048

REACTIONS (5)
  - COELIAC DISEASE [None]
  - NEUROPATHY PERIPHERAL [None]
  - GASTROINTESTINAL DISORDER [None]
  - CONDITION AGGRAVATED [None]
  - DERMATITIS HERPETIFORMIS [None]
